FAERS Safety Report 7104411-5 (Version None)
Quarter: 2010Q4

REPORT INFORMATION
  Report Type: 
  Country: None (occurrence: None)
  Receive Date: 20101115
  Receipt Date: 20101022
  Transmission Date: 20110411
  Serious: Yes (Hospitalization)
  Sender: FDA-Public Use
  Company Number: GB-AMGEN-GBRCT2010001748

PATIENT

DRUGS (14)
  1. ETANERCEPT [Suspect]
     Indication: RHEUMATOID ARTHRITIS
     Dosage: 25 MG, 2 TIMES/WK
     Dates: start: 20040714
  2. PREDNISOLONE [Concomitant]
     Dosage: UNKNOWN
  3. ALENDRONATE SODIUM [Concomitant]
     Dosage: UNKNOWN
  4. BENDROFLUAZIDE [Concomitant]
     Dosage: UNKNOWN
  5. CALCICHEW [Concomitant]
     Dosage: UNKNOWN
  6. VALDECOXIB [Concomitant]
     Dosage: UNKNOWN
  7. ILUBE [Concomitant]
     Dosage: UNKNOWN
  8. OMEPRAZOLE [Concomitant]
     Dosage: UNKNOWN
  9. PREMARIN [Concomitant]
     Dosage: UNKNOWN
  10. SALBUTAMOL [Concomitant]
     Dosage: UNKNOWN
  11. SIMVASTATIN [Concomitant]
     Dosage: UNKNOWN
  12. LEVOTHYROXINE SODIUM [Concomitant]
     Dosage: UNKNOWN
  13. METHOTREXATE [Concomitant]
     Dosage: UNKNOWN
  14. DIHYDROCODEINE BITARTRATE INJ [Concomitant]
     Dosage: UNKNOWN

REACTIONS (1)
  - MYOCARDIAL INFARCTION [None]
